FAERS Safety Report 5984368-0 (Version None)
Quarter: 2008Q4

REPORT INFORMATION
  Report Type: 
  Country: None (occurrence: None)
  Receive Date: 20081208
  Receipt Date: 20081204
  Transmission Date: 20090506
  Serious: Yes (Life-Threatening, Other)
  Sender: FDA-Public Use
  Company Number: PHNU2008DE02002

PATIENT
  Sex: Female

DRUGS (9)
  1. RASILEZ [Suspect]
     Indication: HYPERTENSION
     Dosage: 1 DF, QD
     Route: 048
     Dates: start: 20071213, end: 20071214
  2. RASILEZ [Suspect]
  3. RASILEZ [Suspect]
     Indication: VENTRICULAR FIBRILLATION
  4. INSPRA [Concomitant]
     Dosage: 1 DF, QD
     Dates: start: 20071213
  5. METOPROLOL SUCCINATE [Concomitant]
     Indication: HYPERTENSION
     Dosage: 1 DF, BID
  6. ATACAND HCT [Concomitant]
     Dosage: 1 DF, QD
  7. PLAVIX [Concomitant]
  8. AMLODIPIN ^ORIFARM^ [Concomitant]
  9. KALINOR RETARD [Concomitant]
     Dosage: 1 DF, TID

REACTIONS (5)
  - ANGINA PECTORIS [None]
  - ATRIAL FIBRILLATION [None]
  - CHEST DISCOMFORT [None]
  - DYSPNOEA [None]
  - PALPITATIONS [None]
